FAERS Safety Report 6209048-8 (Version None)
Quarter: 2009Q2

REPORT INFORMATION
  Report Type: 
  Country: None (occurrence: None)
  Receive Date: 20090529
  Receipt Date: 20090522
  Transmission Date: 20091009
  Serious: Yes (Hospitalization)
  Sender: FDA-Public Use
  Company Number: US-BIOGENIDEC-2008BI022483

PATIENT
  Age: 54 Year
  Sex: Female

DRUGS (2)
  1. TYSABRI [Suspect]
     Indication: MULTIPLE SCLEROSIS
     Route: 042
     Dates: start: 20070612
  2. TYSABRI [Suspect]
     Route: 042
     Dates: start: 20080206, end: 20090101

REACTIONS (7)
  - APPENDICEAL ABSCESS [None]
  - DIPLOPIA [None]
  - HEADACHE [None]
  - NEUROGENIC BLADDER [None]
  - PHOTOSENSITIVITY REACTION [None]
  - PYREXIA [None]
  - URINARY TRACT INFECTION [None]
